FAERS Safety Report 6677214-3 (Version None)
Quarter: 2010Q2

REPORT INFORMATION
  Report Type: 
  Country: None (occurrence: None)
  Receive Date: 20100412
  Receipt Date: 20100407
  Transmission Date: 20101027
  Serious: Yes (Hospitalization)
  Sender: FDA-Public Use
  Company Number: BR-BRISTOL-MYERS SQUIBB COMPANY-15052988

PATIENT
  Age: 54 Year
  Sex: Female

DRUGS (6)
  1. CARBOPLATIN [Suspect]
     Indication: OVARIAN CANCER
     Route: 042
     Dates: start: 20100305
  2. PACLITAXEL [Suspect]
     Indication: OVARIAN CANCER
     Route: 042
     Dates: start: 20100305
  3. PARACETAMOL [Concomitant]
     Route: 048
     Dates: start: 20100305, end: 20100305
  4. DEXAMETHASONE [Concomitant]
     Route: 042
     Dates: start: 20100305, end: 20100305
  5. ONDANSETRON [Concomitant]
     Route: 042
     Dates: start: 20100305, end: 20100305
  6. DIPHENHYDRAMINE HYDROCHLORIDE [Concomitant]
     Route: 042
     Dates: start: 20100305, end: 20100305

REACTIONS (2)
  - DYSPNOEA [None]
  - FATIGUE [None]
